FAERS Safety Report 7670335-8 (Version None)
Quarter: 2011Q3

REPORT INFORMATION
  Report Type: 
  Country: None (occurrence: None)
  Receive Date: 20110809
  Receipt Date: 20110728
  Transmission Date: 20111222
  Serious: No
  Sender: FDA-Public Use
  Company Number: US-BIOGENIDEC-2011BI003719

PATIENT
  Sex: Female

DRUGS (1)
  1. TYSABRI [Suspect]
     Indication: MULTIPLE SCLEROSIS
     Route: 042
     Dates: start: 20100223

REACTIONS (9)
  - DYSSTASIA [None]
  - SPEECH DISORDER [None]
  - GENERAL SYMPTOM [None]
  - DRUG INEFFECTIVE [None]
  - MALAISE [None]
  - GAIT DISTURBANCE [None]
  - ALOPECIA [None]
  - BALANCE DISORDER [None]
  - FALL [None]
